FAERS Safety Report 4834089-2 (Version None)
Quarter: 2005Q4

REPORT INFORMATION
  Report Type: 
  Country: None (occurrence: None)
  Receive Date: 20051122
  Receipt Date: 20020624
  Transmission Date: 20060501
  Serious: Yes (Other)
  Sender: FDA-Public Use
  Company Number: US-SANOFI-SYNTHELABO-A03200200431

PATIENT
  Sex: Male

DRUGS (8)
  1. AMBIEN [Suspect]
     Indication: DRUG USE FOR UNKNOWN INDICATION
     Route: 048
     Dates: start: 20020515, end: 20020601
  2. CALAN [Concomitant]
     Dosage: UNK
     Route: 065
  3. VERAPAMIL [Concomitant]
     Dosage: UNK
     Route: 065
  4. ZOLOFT [Concomitant]
     Dosage: UNK
     Route: 065
  5. ASPIRIN [Concomitant]
     Dosage: UNK
     Route: 065
  6. PRILOSEC [Concomitant]
     Dosage: UNK
     Route: 065
  7. XANAX [Concomitant]
     Dosage: UNK
     Route: 065
  8. LIPITOR [Concomitant]
     Dosage: UNK
     Route: 065

REACTIONS (18)
  - AMNESIA [None]
  - ANXIETY [None]
  - DEPRESSION [None]
  - DIPLOPIA [None]
  - DISTURBANCE IN ATTENTION [None]
  - DIZZINESS [None]
  - DYSARTHRIA [None]
  - FATIGUE [None]
  - GAIT DISTURBANCE [None]
  - HEADACHE [None]
  - HYPOAESTHESIA [None]
  - MEDICATION ERROR [None]
  - NAUSEA [None]
  - TRANSIENT ISCHAEMIC ATTACK [None]
  - TREMOR [None]
  - VERTIGO [None]
  - VISION BLURRED [None]
  - WRONG DRUG ADMINISTERED [None]
